FAERS Safety Report 25508438 (Version 8)
Quarter: 2025Q4

REPORT INFORMATION
  Report Type: Spontaneous
  Country: MX (occurrence: MX)
  Receive Date: 20250703
  Receipt Date: 20251223
  Transmission Date: 20260118
  Serious: Yes (Other)
  Sender: SANDOZ
  Company Number: MX-002147023-NVSC2025MX098731

PATIENT
  Sex: Female
  Weight: 37 kg

DRUGS (12)
  1. FULVESTRANT [Suspect]
     Active Substance: FULVESTRANT
     Indication: Breast cancer
     Dosage: 2 DOSAGE FORM, QMO (2 OF 250 MG/5 ML)
     Dates: start: 2020, end: 202303
  2. KISQALI [Suspect]
     Active Substance: RIBOCICLIB SUCCINATE
     Indication: Breast cancer
     Dosage: 2 DF, QD (2 OF 200MG QD)
  3. KISQALI [Suspect]
     Active Substance: RIBOCICLIB SUCCINATE
     Dosage: 2 DF, QD (2 OF 200MG QD)
  4. KISQALI [Suspect]
     Active Substance: RIBOCICLIB SUCCINATE
     Dosage: 200 MG, QD (2 OF 200 MG, QD)
     Dates: start: 2021
  5. KISQALI [Suspect]
     Active Substance: RIBOCICLIB SUCCINATE
     Dosage: 3 DOSAGE FORM, QD (3 OF 200 MG)
     Dates: start: 2021, end: 2022
  6. KISQALI [Suspect]
     Active Substance: RIBOCICLIB SUCCINATE
     Dosage: 2 OF 200MG QD
     Dates: start: 202504
  7. KISQALI [Suspect]
     Active Substance: RIBOCICLIB SUCCINATE
     Dosage: 2 DOSAGE FORM, QD (2 OF 200 MG, 2 TABLETS ONCE A DAY)
     Dates: start: 2025
  8. TAMOXIFEN [Suspect]
     Active Substance: TAMOXIFEN
     Indication: Breast cancer
     Dosage: 1 DOSAGE FORM, QD (1 OF 20 MG)
  9. CLONAZEPAM [Concomitant]
     Active Substance: CLONAZEPAM
     Indication: Insomnia
     Dosage: 0.5 MG OF 2 MG, QD
     Dates: start: 2020
  10. PREGABALIN [Concomitant]
     Active Substance: PREGABALIN
     Indication: Pain
     Dosage: 1 DOSAGE FORM (1 OF 75 MG)
  11. PALBOCICLIB [Concomitant]
     Active Substance: PALBOCICLIB
     Indication: Product used for unknown indication
     Dosage: UNK
  12. LEVOTHYROXINE [Concomitant]
     Active Substance: LEVOTHYROXINE
     Indication: Product used for unknown indication
     Dosage: 1 DOSAGE FORM (1000MCG (1 TABLET A DAY MONDAY, TUESDAY, WEDNESDAY), ? TABLET ON THURSDAY, FRIDAY, SATURDAY AND SUNDAY

REACTIONS (12)
  - Hypothyroidism [Not Recovered/Not Resolved]
  - Anaphylactic shock [Recovered/Resolved]
  - Metastases to lung [Unknown]
  - Cataract [Recovered/Resolved]
  - Decreased immune responsiveness [Recovered/Resolved]
  - Rhinitis allergic [Recovered/Resolved]
  - Aphonia [Not Recovered/Not Resolved]
  - White blood cell count decreased [Recovered/Resolved]
  - Neutrophil count decreased [Recovered/Resolved]
  - Dizziness [Recovered/Resolved]
  - Platelet count decreased [Recovered/Resolved]
  - Drug hypersensitivity [Recovered/Resolved]

NARRATIVE: CASE EVENT DATE: 20210101
